FAERS Safety Report 8552531-0 (Version None)
Quarter: 2012Q3

REPORT INFORMATION
  Report Type: 
  Country: None (occurrence: None)
  Receive Date: 20120731
  Receipt Date: 20120727
  Transmission Date: 20120928
  Serious: Yes (Hospitalization)
  Sender: FDA-Public Use
  Company Number: US-JNJFOC-20120714099

PATIENT
  Sex: Male
  Weight: 78.02 kg

DRUGS (3)
  1. DAPTOMYCIN [Concomitant]
     Indication: INFECTION
     Route: 065
  2. ZYTIGA [Suspect]
     Indication: PROSTATE CANCER METASTATIC
     Route: 048
     Dates: start: 20120301
  3. VANCOMYCIN [Concomitant]
     Indication: INFECTION
     Route: 065
     Dates: start: 20120101, end: 20120101

REACTIONS (6)
  - JOINT DESTRUCTION [None]
  - ABASIA [None]
  - CELLULITIS [None]
  - POST PROCEDURAL INFECTION [None]
  - INFECTION [None]
  - DRUG ADMINISTRATION ERROR [None]
